FAERS Safety Report 13390144 (Version 1)
Quarter: 2017Q1

REPORT INFORMATION
  Report Type: Spontaneous
  Country: US (occurrence: US)
  Receive Date: 20170331
  Receipt Date: 20170331
  Transmission Date: 20170429
  Serious: No
  Sender: FDA-Public Use
  Company Number: US-TEVA-749574ACC

PATIENT
  Age: 61 Year
  Sex: Female

DRUGS (8)
  1. COPAXONE [Suspect]
     Active Substance: GLATIRAMER ACETATE
     Indication: MULTIPLE SCLEROSIS
     Route: 058
     Dates: start: 20161116
  2. ELAVIL [Concomitant]
     Active Substance: AMITRIPTYLINE HYDROCHLORIDE
  3. ARTHROTEC [Concomitant]
     Active Substance: DICLOFENAC SODIUM\MISOPROSTOL
  4. BOTOX [Concomitant]
     Active Substance: ONABOTULINUMTOXINA
  5. VESICARE [Concomitant]
     Active Substance: SOLIFENACIN SUCCINATE
  6. VITAMIN B COMPLEX [Concomitant]
     Active Substance: CYANOCOBALAMIN\DEXPANTHENOL\NIACINAMIDE\PYRIDOXINE HYDROCHLORIDE\RIBOFLAVIN 5^-PHOSPHATE SODIUM\THIAMINE HYDROCHLORIDE\VITAMIN B COMPLEX
  7. VITAMIN D [Concomitant]
     Active Substance: CHOLECALCIFEROL
  8. MOBIC [Concomitant]
     Active Substance: MELOXICAM

REACTIONS (3)
  - Motor dysfunction [Unknown]
  - Injection site atrophy [Unknown]
  - Muscular weakness [Unknown]

NARRATIVE: CASE EVENT DATE: 201611
